FAERS Safety Report 6570219-2 (Version None)
Quarter: 2010Q1

REPORT INFORMATION
  Report Type: 
  Country: None (occurrence: None)
  Receive Date: 20100204
  Receipt Date: 20100126
  Transmission Date: 20100710
  Serious: Yes (Other)
  Sender: FDA-Public Use
  Company Number: US-SANOFI-AVENTIS-2010SA005766

PATIENT
  Age: 79 Year
  Sex: Female

DRUGS (3)
  1. LANTUS [Suspect]
     Indication: DIABETES MELLITUS
     Dosage: DOSE:25 UNIT(S)
     Route: 058
     Dates: end: 20100101
  2. LANTUS [Suspect]
     Dosage: DOSE:15 UNIT(S)
     Route: 058
     Dates: start: 20100101
  3. SOLOSTAR [Suspect]
     Indication: DIABETES MELLITUS

REACTIONS (8)
  - BLOOD GLUCOSE DECREASED [None]
  - BLOOD GLUCOSE INCREASED [None]
  - CATARACT [None]
  - INFLUENZA [None]
  - INJECTION SITE HAEMATOMA [None]
  - LOSS OF CONSCIOUSNESS [None]
  - TOOTH DISORDER [None]
  - VISUAL ACUITY REDUCED [None]
